FAERS Safety Report 11318100 (Version 1)
Quarter: 2015Q3

REPORT INFORMATION
  Report Type: Spontaneous
  Country: US (occurrence: US)
  Receive Date: 20150728
  Receipt Date: 20150728
  Transmission Date: 20151125
  Serious: Yes (Other)
  Sender: FDA-Public Use
  Company Number: US-PFIZER INC-2015247363

PATIENT
  Age: 44 Year
  Sex: Female
  Weight: 79 kg

DRUGS (3)
  1. LISINOPRIL. [Concomitant]
     Active Substance: LISINOPRIL
     Indication: BLOOD PRESSURE ABNORMAL
     Dosage: UNK
  2. CHANTIX [Suspect]
     Active Substance: VARENICLINE TARTRATE
     Indication: SMOKING CESSATION THERAPY
     Dosage: UNK, 1X/DAY
     Dates: start: 201507, end: 20150721
  3. INSULIN [Concomitant]
     Active Substance: INSULIN NOS
     Indication: DIABETES MELLITUS
     Dosage: UNK

REACTIONS (9)
  - Homicidal ideation [Recovering/Resolving]
  - Abnormal behaviour [Recovering/Resolving]
  - Screaming [Recovering/Resolving]
  - Anxiety [Recovering/Resolving]
  - Feeling abnormal [Recovering/Resolving]
  - Mental disorder [Recovering/Resolving]
  - Anger [Recovering/Resolving]
  - Insomnia [Recovering/Resolving]
  - Fear [Recovering/Resolving]

NARRATIVE: CASE EVENT DATE: 20150721
